FAERS Safety Report 26095895 (Version 1)
Quarter: 2025Q4

REPORT INFORMATION
  Report Type: Spontaneous
  Country: US (occurrence: US)
  Receive Date: 20251127
  Receipt Date: 20251127
  Transmission Date: 20260118
  Serious: No
  Sender: ALEXION PHARMACEUTICALS
  Company Number: US-ASTRAZENECA-202511NAM019328US

PATIENT
  Age: 40 Year
  Sex: Female

DRUGS (1)
  1. BREZTRI [Suspect]
     Active Substance: BUDESONIDE\FORMOTEROL\GLYCOPYRROLATE
     Route: 065

REACTIONS (7)
  - Chest discomfort [Unknown]
  - Rebound effect [Unknown]
  - Product dose omission issue [Unknown]
  - Injection site pain [Unknown]
  - Asthma [Unknown]
  - Dry eye [Unknown]
  - Vision blurred [Unknown]
